FAERS Safety Report 16532278 (Version 2)
Quarter: 2019Q3

REPORT INFORMATION
  Report Type: Spontaneous
  Country: RO (occurrence: RO)
  Receive Date: 20190704
  Receipt Date: 20190723
  Transmission Date: 20191004
  Serious: Yes (Hospitalization)
  Sender: FDA-Public Use
  Company Number: RO-PFIZER INC-2019232965

PATIENT
  Age: 79 Year
  Sex: Female
  Weight: 48 kg

DRUGS (8)
  1. ZOMETA [Concomitant]
     Active Substance: ZOLEDRONIC ACID
     Dosage: 3 MG, UNK (1 VIAL PERFUSION)
     Route: 042
     Dates: start: 20190506, end: 20190506
  2. EUTHYROX [Concomitant]
     Active Substance: LEVOTHYROXINE SODIUM
     Dosage: 25 UG, 1X/DAY, MORNING
     Dates: start: 20190530
  3. EGILOK [Concomitant]
     Active Substance: METOPROLOL TARTRATE
     Dosage: 25 MG, 1X/DAY (MORNING)
  4. MILURIT [Concomitant]
     Active Substance: ALLOPURINOL
     Dosage: UNK, 1X/DAY (MORNING)
  5. INLYTA [Suspect]
     Active Substance: AXITINIB
     Indication: METASTATIC RENAL CELL CARCINOMA
     Dosage: 1 MG, UNK
     Dates: start: 20190321, end: 20190626
  6. STILNOX [Concomitant]
     Active Substance: ZOLPIDEM TARTRATE
     Dosage: UNK, 1X/DAY (EVENING)
  7. SILIMARINA [Concomitant]
     Dosage: 1000 MG, 1X/DAY (NOON)
  8. TANAKAN [Concomitant]
     Active Substance: GINKGO
     Dosage: UNK, 1X/DAY (MORNING)

REACTIONS (6)
  - Subileus [Unknown]
  - Pyrexia [Unknown]
  - Hypothyroidism [Unknown]
  - Diarrhoea [Unknown]
  - Gastrointestinal disorder [Unknown]
  - Flatulence [Unknown]

NARRATIVE: CASE EVENT DATE: 20190529
